FAERS Safety Report 5151818-1 (Version None)
Quarter: 2006Q4

REPORT INFORMATION
  Report Type: 
  Country: None (occurrence: None)
  Receive Date: 20061107
  Receipt Date: 20061018
  Transmission Date: 20070319
  Serious: Yes (Life-Threatening, Hospitalization)
  Sender: FDA-Public Use
  Company Number: US200610001422

PATIENT
  Age: 57 Year
  Sex: Male
  Weight: 73.9 kg

DRUGS (6)
  1. PEMETREXED (PEMETREXED) VIAL [Suspect]
     Indication: NON-SMALL CELL LUNG CANCER
     Dosage: 940 MG, OTHER, INTRAVENOUS
     Route: 042
     Dates: start: 20060817, end: 20060908
  2. CARBOPLATIN [Suspect]
     Indication: NON-SMALL CELL LUNG CANCER
     Dosage: SEE IMAGE, INTRAVENOUS
     Route: 042
     Dates: end: 20060908
  3. CARBOPLATIN [Suspect]
     Indication: NON-SMALL CELL LUNG CANCER
     Dosage: SEE IMAGE, INTRAVENOUS
     Route: 042
     Dates: start: 20060817
  4. BEVACIZUMAB (BEVACIZUMAB) [Suspect]
     Indication: NON-SMALL CELL LUNG CANCER
     Dosage: 1080 MG, OTHER, INTRAVENOUS
     Route: 042
     Dates: start: 20060817, end: 20060908
  5. FOLIC ACID [Concomitant]
  6. CYANOCOBALAMIN [Concomitant]

REACTIONS (7)
  - ABSCESS [None]
  - DISEASE PROGRESSION [None]
  - DIVERTICULAR PERFORATION [None]
  - DIVERTICULITIS [None]
  - MUCOSAL INFLAMMATION [None]
  - PERITONITIS [None]
  - PYREXIA [None]
